FAERS Safety Report 8879974 (Version 3)
Quarter: 2014Q1

REPORT INFORMATION
  Report Type: Report from Study
  Country: US (occurrence: US)
  Receive Date: 20121031
  Receipt Date: 20140122
  Transmission Date: 20141002
  Serious: Yes (Other)
  Sender: FDA-Public Use
  Company Number: US-ELI_LILLY_AND_COMPANY-US201208008446

PATIENT
  Sex: Female

DRUGS (5)
  1. TERIPARATIDE [Suspect]
     Indication: OSTEOPOROSIS
     Dosage: 20 UG, QD
     Route: 065
     Dates: start: 20120608
  2. TERIPARATIDE [Suspect]
     Dosage: 20 UG, QD
     Route: 065
  3. TERIPARATIDE [Suspect]
     Dosage: 20 UG, QD
     Route: 065
  4. TERIPARATIDE [Suspect]
     Dosage: 20 UG, QD
     Route: 065
  5. ASPIRIN [Suspect]
     Indication: PRODUCT USED FOR UNKNOWN INDICATION
     Dosage: UNK, UNKNOWN
     Route: 065

REACTIONS (8)
  - Renal disorder [Unknown]
  - Hypersomnia [Not Recovered/Not Resolved]
  - Fatigue [Unknown]
  - Vertigo [Recovered/Resolved]
  - Haemorrhage [Unknown]
  - Expired drug administered [Unknown]
  - Pain [Unknown]
  - Injury [Unknown]
